FAERS Safety Report 17686135 (Version 2)
Quarter: 2020Q2

REPORT INFORMATION
  Report Type: Spontaneous
  Country: CN (occurrence: CN)
  Receive Date: 20200420
  Receipt Date: 20200420
  Transmission Date: 20200714
  Serious: Yes (Hospitalization, Other)
  Sender: FDA-Public Use
  Company Number: CN-ENDO PHARMACEUTICALS INC-2020-003198

PATIENT
  Age: 29 Year
  Sex: Male

DRUGS (1)
  1. KETALAR [Suspect]
     Active Substance: KETAMINE HYDROCHLORIDE
     Indication: PRODUCT USED FOR UNKNOWN INDICATION
     Dosage: ONCE WEEKLY AT FIRST AND THEN ONCE EVERY TWO-THREE DAYS UP TO A MAXIMUM OF APPROXIMATELY 10G/DAY

REACTIONS (3)
  - Benign prostatic hyperplasia [Recovered/Resolved]
  - Urinary tract disorder [Recovered/Resolved]
  - Drug abuse [Recovered/Resolved]

NARRATIVE: CASE EVENT DATE: 201704
